FAERS Safety Report 6878223-1 (Version None)
Quarter: 2010Q3

REPORT INFORMATION
  Report Type: 
  Country: None (occurrence: None)
  Receive Date: 20100728
  Receipt Date: 20100721
  Transmission Date: 20110219
  Serious: Yes (Other)
  Sender: FDA-Public Use
  Company Number: JP-PFIZER INC-2010062660

PATIENT
  Age: 84 Year
  Sex: Female
  Weight: 53 kg

DRUGS (8)
  1. ATARAX [Suspect]
     Indication: SENILE PRURITUS
     Dosage: 25 MG, 1X/DAY
     Route: 048
     Dates: start: 20080601, end: 20080701
  2. ATARAX [Suspect]
     Indication: ECZEMA
     Dosage: 75 MG, DAILY
     Route: 048
  3. ATARAX [Suspect]
     Dosage: 50 MG, 2X/DAY
     Dates: start: 20090801
  4. CALCIUM POLYSTYRENE SULFONATE [Concomitant]
     Dosage: 1 DF, 2X/DAY
     Route: 048
     Dates: start: 20100215, end: 20100315
  5. CALCIUM POLYSTYRENE SULFONATE [Concomitant]
     Dosage: 1 DF, 1X/DAY
     Route: 048
     Dates: start: 20100316, end: 20100319
  6. CALCIUM POLYSTYRENE SULFONATE [Concomitant]
     Dosage: 1 DF, 1X/DAY
     Route: 048
     Dates: start: 20100515, end: 20100520
  7. CALCIUM POLYSTYRENE SULFONATE [Concomitant]
     Dosage: 1 DF, 2X/DAY
     Route: 048
     Dates: start: 20100521, end: 20100617
  8. CALCIUM POLYSTYRENE SULFONATE [Concomitant]
     Dosage: 1 DF, 3X/DAY
     Route: 048
     Dates: start: 20100618

REACTIONS (1)
  - BLOOD POTASSIUM INCREASED [None]
